FAERS Safety Report 7108606-6 (Version None)
Quarter: 2010Q4

REPORT INFORMATION
  Report Type: 
  Country: None (occurrence: None)
  Receive Date: 20101112
  Receipt Date: 20101108
  Transmission Date: 20110411
  Serious: Yes (Hospitalization, Other)
  Sender: FDA-Public Use
  Company Number: 2010SP002392

PATIENT
  Age: 31 Year
  Sex: Female
  Weight: 60 kg

DRUGS (3)
  1. GRACIAL (DESOGESTREL/ ETHINYLESTRADIOL / 00570801 / ) [Suspect]
     Indication: CONTRACEPTION
     Dosage: PO
     Route: 048
     Dates: start: 20050101
  2. GRACIAL (DESOGESTREL/ ETHINYLESTRADIOL / 00570801 / ) [Suspect]
     Indication: CONTRACEPTION
     Dosage: PO
     Route: 048
     Dates: start: 20100101
  3. SYNTHROID [Concomitant]

REACTIONS (8)
  - DIARRHOEA [None]
  - DRUG DOSE OMISSION [None]
  - INAPPROPRIATE SCHEDULE OF DRUG ADMINISTRATION [None]
  - MENSTRUATION IRREGULAR [None]
  - POISONING [None]
  - PYREXIA [None]
  - RENAL COLIC [None]
  - VOMITING [None]
